FAERS Safety Report 12805502 (Version 2)
Quarter: 2016Q4

REPORT INFORMATION
  Report Type: Spontaneous
  Country: US (occurrence: US)
  Receive Date: 20161004
  Receipt Date: 20161005
  Transmission Date: 20170207
  Serious: No
  Sender: FDA-Public Use
  Company Number: US-BAYER-2016-187842

PATIENT
  Age: 33 Year
  Sex: Male
  Weight: 104.31 kg

DRUGS (4)
  1. MIRALAX [Suspect]
     Active Substance: POLYETHYLENE GLYCOL 3350
     Indication: GASTROINTESTINAL DISORDER
     Dosage: 1 DOSE, UNK
     Route: 048
     Dates: start: 20160923, end: 20160926
  2. COLACE [Suspect]
     Active Substance: DOCUSATE SODIUM
     Dosage: UNK, QD
     Dates: start: 20160923, end: 20160926
  3. MAGNESIUM CITRATE. [Concomitant]
     Active Substance: MAGNESIUM CITRATE
     Dosage: UNK
     Dates: start: 20160924
  4. SENNA [Suspect]
     Active Substance: SENNA LEAF\SENNOSIDES\SENNOSIDES A AND B
     Dosage: UNK, QD
     Dates: start: 20160923, end: 20160926

REACTIONS (2)
  - Product use issue [Unknown]
  - Diarrhoea [Recovered/Resolved]

NARRATIVE: CASE EVENT DATE: 20160923
